FAERS Safety Report 7067400-5 (Version None)
Quarter: 2010Q4

REPORT INFORMATION
  Report Type: 
  Country: None (occurrence: None)
  Receive Date: 20101026
  Receipt Date: 20101026
  Transmission Date: 20110411
  Serious: Yes (Other)
  Sender: FDA-Public Use
  Company Number: None

PATIENT
  Age: 18 Month
  Sex: Male
  Weight: 10.4327 kg

DRUGS (2)
  1. HYLAND'S TEETHING TABLETS [Suspect]
     Indication: TEETHING
     Dosage: 2-3 TABLETS AS NEEDED PO
     Route: 048
     Dates: start: 20090101, end: 20100601
  2. CHILDREN'S TYLENOL SUSPENSION [Concomitant]

REACTIONS (1)
  - PARALYSIS [None]
